FAERS Safety Report 20414676 (Version 2)
Quarter: 2022Q1

REPORT INFORMATION
  Report Type: Other
  Country: US (occurrence: None)
  Receive Date: 20220202
  Receipt Date: 20220207
  Transmission Date: 20220424
  Serious: Yes (Other)
  Sender: FDA-Public Use
  Company Number: US-ROCHE-3011036

PATIENT
  Age: 44 Year
  Sex: Female
  Weight: 50.848 kg

DRUGS (3)
  1. OCREVUS [Suspect]
     Active Substance: OCRELIZUMAB
     Indication: Relapsing-remitting multiple sclerosis
     Dosage: LAST OCREVUS ADMINISTRATION WAS ON 12-DEC-2021
     Route: 042
     Dates: start: 20180918
  2. BENADRYL [Concomitant]
     Active Substance: DIPHENHYDRAMINE HYDROCHLORIDE
  3. MODERNA COVID-19 VACCINE [Concomitant]
     Active Substance: ELASOMERAN

REACTIONS (4)
  - Multiple sclerosis relapse [Recovered/Resolved]
  - COVID-19 [Recovered/Resolved]
  - Muscle spasms [Recovered/Resolved]
  - Rash [Recovered/Resolved]

NARRATIVE: CASE EVENT DATE: 20180928
